FAERS Safety Report 7486769-0 (Version None)
Quarter: 2011Q2

REPORT INFORMATION
  Report Type: 
  Country: None (occurrence: None)
  Receive Date: 20110517
  Receipt Date: 20110503
  Transmission Date: 20111010
  Serious: Yes (Hospitalization)
  Sender: FDA-Public Use
  Company Number: US-CELGENEUS-163-21880-11050349

PATIENT
  Sex: Female

DRUGS (16)
  1. CALCIUM CARBONATE [Concomitant]
     Route: 065
  2. PREDNISONE [Concomitant]
     Route: 065
  3. NEURONTIN [Concomitant]
     Route: 065
  4. ASPIRIN [Concomitant]
     Dosage: 81 MILLIGRAM
     Route: 065
  5. VERAPAMIL [Concomitant]
     Route: 065
  6. LEVOTHYROXINE SODIUM [Concomitant]
     Route: 065
  7. METFORMIN HCL [Concomitant]
     Route: 065
  8. FLAGYL [Concomitant]
     Indication: ABDOMINAL PAIN
     Route: 065
  9. DEXAMETHASONE [Concomitant]
     Route: 065
  10. PRILOSEC [Concomitant]
     Route: 065
  11. MULTI-VITAMINS [Concomitant]
     Route: 065
  12. REVLIMID [Suspect]
     Indication: MULTIPLE MYELOMA
     Dosage: 5 MILLIGRAM
     Route: 048
     Dates: start: 20110404, end: 20110414
  13. ZOMETA [Concomitant]
     Route: 065
  14. SIMVASTATIN [Concomitant]
     Route: 065
  15. METAMUCIL-2 [Concomitant]
     Route: 065
  16. REVLIMID [Suspect]
     Dosage: 5 MILLIGRAM
     Route: 048
     Dates: start: 20110420, end: 20110429

REACTIONS (3)
  - VOMITING [None]
  - DIARRHOEA [None]
  - COLITIS [None]
